FAERS Safety Report 16204283 (Version 2)
Quarter: 2019Q2

REPORT INFORMATION
  Report Type: Spontaneous
  Country: US (occurrence: US)
  Receive Date: 20190416
  Receipt Date: 20190430
  Transmission Date: 20190711
  Serious: Yes (Hospitalization)
  Sender: FDA-Public Use
  Company Number: US-ASTRAZENECA-2019SE56556

PATIENT
  Sex: Male
  Weight: 106.6 kg

DRUGS (2)
  1. TUDORZA PRESSAIR [Suspect]
     Active Substance: ACLIDINIUM BROMIDE
     Indication: CHRONIC OBSTRUCTIVE PULMONARY DISEASE
     Route: 055
  2. ADVAIR HFA [Concomitant]
     Active Substance: FLUTICASONE PROPIONATE\SALMETEROL XINAFOATE

REACTIONS (6)
  - Circumstance or information capable of leading to medication error [Unknown]
  - Memory impairment [Unknown]
  - Incorrect dose administered [Unknown]
  - Device issue [Unknown]
  - Ageusia [Unknown]
  - Gastric haemorrhage [Recovered/Resolved]
